FAERS Safety Report 15996822 (Version 2)
Quarter: 2019Q1

REPORT INFORMATION
  Report Type: Spontaneous
  Country: FR (occurrence: FR)
  Receive Date: 20190222
  Receipt Date: 20190222
  Transmission Date: 20190418
  Serious: Yes (Hospitalization)
  Sender: FDA-Public Use
  Company Number: FR-BAYER-2019-032592

PATIENT
  Age: 76 Year
  Sex: Male
  Weight: 68 kg

DRUGS (1)
  1. STIVARGA [Suspect]
     Active Substance: REGORAFENIB
     Indication: NEOPLASM MALIGNANT
     Dosage: 160 MG DAILY
     Route: 048

REACTIONS (3)
  - Decreased appetite [Recovering/Resolving]
  - Ascites [Recovering/Resolving]
  - General physical health deterioration [Recovering/Resolving]

NARRATIVE: CASE EVENT DATE: 20181211
